FAERS Safety Report 20292015 (Version 1)
Quarter: 2022Q1

REPORT INFORMATION
  Report Type: Spontaneous
  Country: LK (occurrence: LK)
  Receive Date: 20220104
  Receipt Date: 20220104
  Transmission Date: 20220423
  Serious: Yes (Other)
  Sender: FDA-Public Use
  Company Number: LK-BAYER-2021A276806

PATIENT
  Age: 56 Year
  Sex: Male

DRUGS (10)
  1. MOXIFLOXACIN [Suspect]
     Active Substance: MOXIFLOXACIN
     Indication: Pulmonary tuberculosis
     Dosage: 400 MG
  2. MOXIFLOXACIN [Suspect]
     Active Substance: MOXIFLOXACIN
     Indication: Pulmonary tuberculosis
  3. KANAMYCIN [Suspect]
     Active Substance: KANAMYCIN A SULFATE
     Indication: Pulmonary tuberculosis
     Dosage: 750 MG
  4. CYCLOSERINE [Suspect]
     Active Substance: CYCLOSERINE
     Indication: Pulmonary tuberculosis
     Dosage: 500 MG
  5. ETHIONAMIDE [Suspect]
     Active Substance: ETHIONAMIDE
     Indication: Pulmonary tuberculosis
     Dosage: 750 MG
  6. PYRAZINAMIDE [Suspect]
     Active Substance: PYRAZINAMIDE
     Indication: Pulmonary tuberculosis
  7. CAPREOMYCIN [Suspect]
     Active Substance: CAPREOMYCIN
     Indication: Pulmonary tuberculosis
  8. LINEZOLID [Suspect]
     Active Substance: LINEZOLID
     Indication: Pulmonary tuberculosis
     Dosage: 600 MG
  9. CLOFAZIMINE [Suspect]
     Active Substance: CLOFAZIMINE
     Dosage: 200 MG
  10. AMINOSALICYLATE SODIUM [Suspect]
     Active Substance: AMINOSALICYLATE SODIUM
     Indication: Pulmonary tuberculosis
     Dosage: 8 MG

REACTIONS (2)
  - Pathogen resistance [None]
  - Off label use [None]
